FAERS Safety Report 8472218-2 (Version None)
Quarter: 2012Q2

REPORT INFORMATION
  Report Type: 
  Country: None (occurrence: None)
  Receive Date: 20120627
  Receipt Date: 20120615
  Transmission Date: 20120825
  Serious: Yes (Hospitalization)
  Sender: FDA-Public Use
  Company Number: CA-ELI_LILLY_AND_COMPANY-CA201206005249

PATIENT
  Age: 88 Year
  Sex: Female

DRUGS (10)
  1. D-TABS [Concomitant]
     Dosage: UNK
     Route: 065
  2. CRESTOR [Concomitant]
     Dosage: UNK
     Route: 065
  3. DILTIAZEM HYDROCHOLORIDE [Concomitant]
     Dosage: UNK
     Route: 065
  4. NITROTAB [Concomitant]
     Dosage: UNK
     Route: 065
  5. PANTOPRAZOLE SODIUM [Concomitant]
     Dosage: UNK
     Route: 065
  6. FORTEO [Suspect]
     Indication: OSTEOPOROSIS
     Dosage: 20 UG, QD
     Route: 058
     Dates: start: 20120214
  7. ASPIRIN [Concomitant]
     Dosage: UNK
     Route: 065
  8. PLAVIX [Concomitant]
     Dosage: UNK
     Route: 065
  9. ATENOLOL [Concomitant]
     Dosage: UNK
     Route: 065
  10. CALCIUM [Concomitant]
     Dosage: UNK
     Route: 065

REACTIONS (2)
  - ERYTHEMA [None]
  - CEREBROVASCULAR ACCIDENT [None]
